FAERS Safety Report 5592574-2 (Version None)
Quarter: 2007Q4

REPORT INFORMATION
  Report Type: 
  Country: None (occurrence: None)
  Receive Date: 20071217
  Receipt Date: 20070830
  Transmission Date: 20080405
  Serious: Yes (Hospitalization)
  Sender: FDA-Public Use
  Company Number: 13893813

PATIENT
  Sex: Female
  Weight: 133.3 kg

DRUGS (5)
  1. EMSAM [Suspect]
     Indication: DEPRESSION
     Dosage: 6 MILLIGRAM,1/1 DAY TD
     Route: 062
  2. METFORMIN HCL [Concomitant]
  3. LISINOPRIL [Concomitant]
  4. LYRICA [Concomitant]
  5. TEMAZEPAM [Concomitant]

REACTIONS (4)
  - ASTHENIA [None]
  - INSOMNIA [None]
  - SOMNOLENCE [None]
  - SUICIDE ATTEMPT [None]
